FAERS Safety Report 6606413-1 (Version None)
Quarter: 2010Q1

REPORT INFORMATION
  Report Type: 
  Country: None (occurrence: None)
  Receive Date: 20100226
  Receipt Date: 20100216
  Transmission Date: 20100710
  Serious: Yes (Death, Other)
  Sender: FDA-Public Use
  Company Number: JP-PFIZER INC-2010015362

PATIENT
  Age: 79 Year
  Sex: Male
  Weight: 41 kg

DRUGS (9)
  1. LINEZOLID [Suspect]
     Indication: ABSCESS
     Dosage: 600 MG, 2X/DAY
     Route: 042
     Dates: start: 20090522, end: 20090618
  2. LINEZOLID [Suspect]
     Dosage: 600 MG, 2X/DAY
     Route: 042
     Dates: start: 20090630, end: 20090804
  3. VANCOMYCIN HYDROCHLORIDE [Suspect]
     Indication: STAPHYLOCOCCAL INFECTION
     Dosage: 1 G, 2X/DAY
     Route: 042
     Dates: start: 20090507, end: 20090522
  4. VANCOMYCIN HYDROCHLORIDE [Suspect]
     Dosage: 1 G, 2X/DAY
     Route: 042
     Dates: start: 20090619, end: 20090625
  5. VANCOMYCIN HYDROCHLORIDE [Suspect]
     Dosage: 0.5 G, 1X/DAY
     Route: 042
     Dates: start: 20090626, end: 20090627
  6. MEROPENEM TRIHYDRATE [Suspect]
     Indication: STAPHYLOCOCCAL INFECTION
     Dosage: 1 G, 3X/DAY
     Route: 042
     Dates: start: 20090506, end: 20090511
  7. PASIL [Suspect]
     Indication: STAPHYLOCOCCAL INFECTION
     Dosage: 0.5 G, 2X/DAY
     Route: 042
     Dates: start: 20090511, end: 20090522
  8. MINOPEN [Suspect]
     Indication: STAPHYLOCOCCAL INFECTION
     Dosage: 0.1 G, 2X/DAY
     Route: 042
     Dates: start: 20090627, end: 20090630
  9. ASPIRIN [Concomitant]
     Dosage: UNK
     Route: 048
     Dates: start: 20090512, end: 20090629

REACTIONS (3)
  - BONE MARROW FAILURE [None]
  - SEPSIS [None]
  - URINARY TRACT INFECTION [None]
